FAERS Safety Report 18894291 (Version 4)
Quarter: 2021Q2

REPORT INFORMATION
  Report Type: Report from Study
  Country: US (occurrence: US)
  Receive Date: 20210215
  Receipt Date: 20210406
  Transmission Date: 20210717
  Serious: No
  Sender: FDA-Public Use
  Company Number: NVSC2021US030478

PATIENT
  Sex: Female

DRUGS (1)
  1. PIQRAY [Suspect]
     Active Substance: ALPELISIB
     Indication: PRODUCT USED FOR UNKNOWN INDICATION
     Dosage: UNK
     Route: 048

REACTIONS (9)
  - Fatigue [Unknown]
  - Retching [Unknown]
  - Product dose omission issue [Unknown]
  - Oral mucosal roughening [Unknown]
  - Stomatitis [Unknown]
  - Dysgeusia [Unknown]
  - Lethargy [Unknown]
  - Blood glucose increased [Unknown]
  - Nausea [Unknown]
